FAERS Safety Report 7964801-5 (Version None)
Quarter: 2011Q4

REPORT INFORMATION
  Report Type: 
  Country: None (occurrence: None)
  Receive Date: 20111208
  Receipt Date: 20111103
  Transmission Date: 20120403
  Serious: Yes (Hospitalization, Other)
  Sender: FDA-Public Use
  Company Number: US-ROCHE-1007505

PATIENT
  Sex: Female

DRUGS (6)
  1. HERCEPTIN [Suspect]
     Indication: BREAST CANCER
     Route: 042
     Dates: start: 20110107, end: 20110109
  2. CITALOPRAM [Concomitant]
     Indication: INSOMNIA
     Route: 048
  3. LISINOPRIL [Concomitant]
     Indication: HYPERTENSION
     Route: 048
  4. LOVASTATIN [Concomitant]
     Indication: BLOOD CHOLESTEROL INCREASED
     Route: 048
  5. CITALOPRAM [Concomitant]
     Indication: ANXIETY
  6. NEXIUM [Concomitant]
     Indication: BARRETT'S OESOPHAGUS
     Route: 048

REACTIONS (10)
  - HIATUS HERNIA [None]
  - COLITIS [None]
  - ARTHRALGIA [None]
  - DECREASED APPETITE [None]
  - VOMITING [None]
  - INFLUENZA LIKE ILLNESS [None]
  - NAUSEA [None]
  - JOINT SWELLING [None]
  - WEIGHT DECREASED [None]
  - DIARRHOEA [None]
